FAERS Safety Report 4749260-8 (Version None)
Quarter: 2005Q3

REPORT INFORMATION
  Report Type: 
  Country: None (occurrence: None)
  Receive Date: 20050817
  Receipt Date: 20050805
  Transmission Date: 20060218
  Serious: Yes (Hospitalization, Other)
  Sender: FDA-Public Use
  Company Number: 2005FR-00221

PATIENT
  Age: 9 Year
  Sex: Female
  Weight: 30 kg

DRUGS (3)
  1. ASPIRIN [Suspect]
     Dosage: 80 MG QDS ORAL
     Route: 048
     Dates: start: 20050622, end: 20050628
  2. HYDRALAZINE [Concomitant]
  3. OMEPRAZOLE [Concomitant]

REACTIONS (2)
  - LIVER FUNCTION TEST ABNORMAL [None]
  - MITRAL VALVE INCOMPETENCE [None]
